FAERS Safety Report 8022707-X (Version None)
Quarter: 2012Q1

REPORT INFORMATION
  Report Type: 
  Country: None (occurrence: None)
  Receive Date: 20120104
  Receipt Date: 20111228
  Transmission Date: 20120608
  Serious: Yes (Hospitalization)
  Sender: FDA-Public Use
  Company Number: TR-CEPHALON-2011003558

PATIENT
  Sex: Female
  Weight: 60 kg

DRUGS (2)
  1. RITUXIMAB [Suspect]
     Route: 042
     Dates: start: 20110628, end: 20110629
  2. BENDAMUSTINE HCL [Suspect]
     Route: 040
     Dates: start: 20110628, end: 20110629

REACTIONS (1)
  - MYOCARDIAL INFARCTION [None]
